FAERS Safety Report 5401575-6 (Version None)
Quarter: 2007Q3

REPORT INFORMATION
  Report Type: 
  Country: None (occurrence: None)
  Receive Date: 20070731
  Receipt Date: 20070720
  Transmission Date: 20080115
  Serious: Yes (Hospitalization, Other)
  Sender: FDA-Public Use
  Company Number: CA-PFIZER INC-2007054220

PATIENT
  Sex: Female
  Weight: 77.1 kg

DRUGS (6)
  1. LIPITOR [Suspect]
     Indication: HYPERLIPIDAEMIA
     Route: 048
     Dates: start: 20070518, end: 20070622
  2. METOPROLOL SUCCINATE [Suspect]
     Indication: ANGINA PECTORIS
     Route: 048
  3. ALTACE [Suspect]
     Indication: ANGINA PECTORIS
     Dosage: DAILY DOSE:2.5MG
     Route: 048
  4. ALTACE [Suspect]
     Indication: HYPERTENSION
  5. PLAVIX [Suspect]
  6. ASPIRIN [Concomitant]
     Indication: PROPHYLAXIS
     Dosage: DAILY DOSE:81MG
     Route: 048

REACTIONS (1)
  - CARPAL TUNNEL SYNDROME [None]
